FAERS Safety Report 12759349 (Version 1)
Quarter: 2016Q3

REPORT INFORMATION
  Report Type: Spontaneous
  Country: US (occurrence: US)
  Receive Date: 20160919
  Receipt Date: 20160919
  Transmission Date: 20161109
  Serious: No
  Sender: FDA-Public Use
  Company Number: US-BAYER-2016-180841

PATIENT
  Age: 50 Year
  Sex: Male
  Weight: 113.38 kg

DRUGS (2)
  1. DULCOLAX (DOCUSATE SODIUM) [Concomitant]
     Active Substance: DOCUSATE SODIUM
  2. MIRALAX [Suspect]
     Active Substance: POLYETHYLENE GLYCOL 3350
     Indication: COLONOSCOPY
     Dosage: UNKNOWN
     Route: 048

REACTIONS (1)
  - Circumstance or information capable of leading to medication error [Unknown]
